FAERS Safety Report 4957172-X (Version None)
Quarter: 2006Q1

REPORT INFORMATION
  Report Type: 
  Country: None (occurrence: None)
  Receive Date: 20060329
  Receipt Date: 20051025
  Transmission Date: 20060701
  Serious: Yes (Hospitalization)
  Sender: FDA-Public Use
  Company Number: US-MERCK-0510USA09190

PATIENT
  Age: 51 Year
  Sex: Male
  Weight: 86 kg

DRUGS (2)
  1. NEURONTIN [Concomitant]
     Indication: ARTHRALGIA
     Route: 065
     Dates: start: 20040201
  2. VIOXX [Suspect]
     Indication: ARTHRITIS
     Route: 048
     Dates: start: 20011117, end: 20040930

REACTIONS (1)
  - MYOCARDIAL INFARCTION [None]
